FAERS Safety Report 17461249 (Version 1)
Quarter: 2020Q1

REPORT INFORMATION
  Report Type: Spontaneous
  Country: US (occurrence: US)
  Receive Date: 20200213
  Receipt Date: 20200213
  Transmission Date: 20200409
  Serious: Yes (Other)
  Sender: FDA-Public Use
  Company Number: None

PATIENT
  Age: 13 Year
  Sex: Female
  Weight: 47.17 kg

DRUGS (2)
  1. TRIAMCINOLONE ACETONIDE OINTMENT USP .5% [Suspect]
     Active Substance: TRIAMCINOLONE ACETONIDE
     Indication: PSORIASIS
     Dosage: ?          QUANTITY:15 G GRAM(S);OTHER FREQUENCY:1 DAY;?
     Route: 061
     Dates: start: 201903, end: 20200120
  2. HEMPWORX CBD OIL [Concomitant]

REACTIONS (2)
  - Skin discolouration [None]
  - Skin striae [None]
